FAERS Safety Report 11294515 (Version 3)
Quarter: 2015Q3

REPORT INFORMATION
  Report Type: Report from Study
  Country: US (occurrence: None)
  Receive Date: 20150721
  Receipt Date: 20150916
  Transmission Date: 20151125
  Serious: Yes (Hospitalization)
  Sender: FDA-Public Use
  Company Number: 2015AP010609

PATIENT
  Age: 13 Year
  Sex: Male
  Weight: 89 kg

DRUGS (3)
  1. FERRIPROX [Suspect]
     Active Substance: DEFERIPRONE
     Indication: HAEMOCHROMATOSIS
     Route: 048
     Dates: start: 20140506, end: 20150629
  2. MIRALAX [Concomitant]
     Active Substance: POLYETHYLENE GLYCOL 3350
  3. FERRIPROX [Suspect]
     Active Substance: DEFERIPRONE
     Indication: SICKLE CELL ANAEMIA
     Route: 048
     Dates: start: 20140506, end: 20150629

REACTIONS (2)
  - Liver function test abnormal [None]
  - Seizure [None]

NARRATIVE: CASE EVENT DATE: 201506
